FAERS Safety Report 5525861-4 (Version None)
Quarter: 2007Q4

REPORT INFORMATION
  Report Type: 
  Country: None (occurrence: None)
  Receive Date: 20071126
  Receipt Date: 20071116
  Transmission Date: 20080405
  Serious: Yes (Hospitalization, Disabling, Other)
  Sender: FDA-Public Use
  Company Number: GB-AVENTIS-200720644GDDC

PATIENT
  Age: 54 Year
  Sex: Female

DRUGS (11)
  1. LEFLUNOMIDE [Suspect]
  2. PREDNISOLONE [Suspect]
  3. AMITRIPTYLINE HCL [Concomitant]
     Dosage: DOSE: UNK
  4. ASPIRIN [Concomitant]
     Dosage: DOSE: UNK
  5. ATENOLOL [Concomitant]
     Dosage: DOSE: UNK
  6. BENDROFLUMETHIAZIDE [Concomitant]
     Dosage: DOSE: UNK
  7. FLUOXETINE [Concomitant]
     Dosage: DOSE: UNK
  8. LEVOTHYROXINE SODIUM [Concomitant]
     Dosage: DOSE: UNK
  9. NAPROXEN [Concomitant]
     Dosage: DOSE: UNK
  10. PREMIQUE [Concomitant]
     Dosage: DOSE: UNK
  11. SIMVASTATIN [Concomitant]
     Dosage: DOSE: UNK

REACTIONS (1)
  - NECROTISING RETINITIS [None]
